FAERS Safety Report 6712927-6 (Version None)
Quarter: 2010Q2

REPORT INFORMATION
  Report Type: 
  Country: None (occurrence: None)
  Receive Date: 20100506
  Receipt Date: 20100426
  Transmission Date: 20101027
  Serious: Yes (Hospitalization)
  Sender: FDA-Public Use
  Company Number: FR-SP-2010-02517

PATIENT

DRUGS (1)
  1. IMMUCYST [Suspect]
     Indication: BLADDER DISORDER
     Route: 043
     Dates: start: 20091201, end: 20091201

REACTIONS (2)
  - POLYARTHRITIS [None]
  - POLYP [None]
